FAERS Safety Report 8546401-1 (Version None)
Quarter: 2012Q3

REPORT INFORMATION
  Report Type: 
  Country: None (occurrence: None)
  Receive Date: 20120727
  Receipt Date: 20120104
  Transmission Date: 20120928
  Serious: No
  Sender: FDA-Public Use
  Company Number: US-ASTRAZENECA-2012SE00943

PATIENT
  Age: 59 Year
  Sex: Male

DRUGS (3)
  1. SHOT FOR THE CANCER [Suspect]
     Route: 065
  2. XANAX [Concomitant]
  3. SEROQUEL [Suspect]
     Indication: DEPRESSION
     Route: 048

REACTIONS (8)
  - PSYCHOTIC DISORDER [None]
  - DRUG DOSE OMISSION [None]
  - DEPRESSION [None]
  - ANXIETY [None]
  - INCORRECT DOSE ADMINISTERED [None]
  - RESTLESSNESS [None]
  - INSOMNIA [None]
  - WEIGHT INCREASED [None]
